FAERS Safety Report 8605895-3 (Version None)
Quarter: 2012Q3

REPORT INFORMATION
  Report Type: 
  Country: None (occurrence: None)
  Receive Date: 20120820
  Receipt Date: 20120810
  Transmission Date: 20120928
  Serious: Yes (Other)
  Sender: FDA-Public Use
  Company Number: FR-GLAXOSMITHKLINE-B0821973A

PATIENT
  Sex: Female

DRUGS (6)
  1. EPIRUBICIN [Concomitant]
     Indication: CHEMOTHERAPY
     Dates: start: 20120516
  2. ZANTAC [Suspect]
     Indication: PREMEDICATION
     Route: 042
     Dates: start: 20120719, end: 20120719
  3. DEXAMETHASONE [Suspect]
     Indication: PREMEDICATION
     Dosage: 8MG PER DAY
     Route: 042
     Dates: start: 20120719, end: 20120719
  4. FLUOROURACIL [Concomitant]
     Indication: CHEMOTHERAPY
     Dates: start: 20120516
  5. CYCLOPHOSPHAMIDE [Concomitant]
     Indication: CHEMOTHERAPY
     Dates: start: 20120516
  6. POLARAMINE [Concomitant]
     Indication: PREMEDICATION
     Dates: start: 20120719, end: 20120719

REACTIONS (3)
  - RASH [None]
  - CHEST DISCOMFORT [None]
  - PRURITUS [None]
